FAERS Safety Report 11866745 (Version 3)
Quarter: 2020Q3

REPORT INFORMATION
  Report Type: Report from Study
  Country: US (occurrence: US)
  Receive Date: 20151224
  Receipt Date: 20160126
  Transmission Date: 20201105
  Serious: Yes (Life-Threatening, Hospitalization)
  Sender: FDA-Public Use
  Company Number: US-ROCHE-1662694

PATIENT
  Age: 43 Year
  Sex: Female
  Weight: 56.3 kg

DRUGS (2)
  1. TRASTUZUMAB EMTANSINE [Suspect]
     Active Substance: ADO-TRASTUZUMAB EMTANSINE
     Route: 042
     Dates: start: 20151113, end: 20151203
  2. TASELISIB. [Suspect]
     Active Substance: TASELISIB
     Route: 048
     Dates: start: 20151113, end: 20151210

REACTIONS (7)
  - Respiratory failure [Not Recovered/Not Resolved]
  - Dyspnoea [Unknown]
  - Vomiting [Recovered/Resolved]
  - Pyrexia [Recovered/Resolved]
  - Pneumonia [Not Recovered/Not Resolved]
  - Pleural effusion [Unknown]
  - Anaemia [Not Recovered/Not Resolved]

NARRATIVE: CASE EVENT DATE: 20151116
